FAERS Safety Report 4591493-8 (Version None)
Quarter: 2005Q1

REPORT INFORMATION
  Report Type: 
  Country: None (occurrence: None)
  Receive Date: 20050222
  Receipt Date: 20050214
  Transmission Date: 20050727
  Serious: Yes (Other)
  Sender: FDA-Public Use
  Company Number: 2005029890

PATIENT
  Age: 55 Year
  Sex: Male
  Weight: 104.3273 kg

DRUGS (2)
  1. LIPITOR [Suspect]
     Indication: ILL-DEFINED DISORDER
  2. ATENOLOL [Concomitant]

REACTIONS (1)
  - CEREBROVASCULAR ACCIDENT [None]
